FAERS Safety Report 4487787-7 (Version None)
Quarter: 2004Q4

REPORT INFORMATION
  Report Type: 
  Country: None (occurrence: None)
  Receive Date: 20041027
  Receipt Date: 20041027
  Transmission Date: 20050328
  Serious: Yes (Other)
  Sender: FDA-Public Use
  Company Number: None

PATIENT
  Age: 39 Year
  Sex: Female
  Weight: 74 kg

DRUGS (14)
  1. WARFARIN   5MG [Suspect]
     Indication: CEREBROVASCULAR ACCIDENT
     Dosage: 5MG   EACH DAY   ORAL
     Route: 048
  2. LEVAQUIN [Suspect]
     Dosage: 500MG  EACH DAY   ORAL
     Route: 048
     Dates: start: 20040915, end: 20040922
  3. LEVAQUIN [Concomitant]
  4. LASIX [Concomitant]
  5. KEPPRA [Concomitant]
  6. PREDNISONE [Concomitant]
  7. SODIUM BICARB [Concomitant]
  8. CALTRATE +D [Concomitant]
  9. COLACE [Concomitant]
  10. HYDROXYCHLOROQUINE SULFATE [Concomitant]
  11. ZOLOFT [Concomitant]
  12. DIOVAN [Concomitant]
  13. PEPCID [Concomitant]
  14. DILTIAZEM [Concomitant]

REACTIONS (1)
  - INTERNATIONAL NORMALISED RATIO INCREASED [None]
